FAERS Safety Report 7612329-4 (Version None)
Quarter: 2011Q3

REPORT INFORMATION
  Report Type: 
  Country: None (occurrence: None)
  Receive Date: 20110715
  Receipt Date: 20110712
  Transmission Date: 20111222
  Serious: Yes (Death)
  Sender: FDA-Public Use
  Company Number: US-CELGENEUS-163-21880-11061462

PATIENT
  Sex: Female

DRUGS (30)
  1. XOPENEX [Concomitant]
     Dosage: 0.63MG/3 ML
     Route: 065
     Dates: start: 20040413
  2. LORTAB [Concomitant]
     Indication: PAIN
     Dosage: 5-500MG, 1-2 TABS
     Route: 048
     Dates: start: 20100301
  3. LEVAQUIN [Concomitant]
     Dosage: 1 TABLET
     Route: 048
     Dates: start: 20101130
  4. VANTIN [Concomitant]
     Dosage: 1 TABLET
     Route: 048
     Dates: start: 20100310
  5. ACETAMINOPHEN [Concomitant]
     Dosage: 1-2 TABLS
     Route: 048
     Dates: start: 20080324
  6. LORATADINE [Concomitant]
     Dosage: 1 TABLESPOON
     Route: 048
  7. PROCRIT [Concomitant]
     Dosage: 40000 UNIT/ML
     Route: 058
     Dates: start: 20100622
  8. ZYMAR [Concomitant]
     Dosage: 1 DROPS
     Route: 047
     Dates: start: 20101029
  9. ZOLOFT [Concomitant]
     Dosage: 1 TABLET
     Route: 048
     Dates: start: 20100301
  10. REVLIMID [Suspect]
     Indication: MYELODYSPLASTIC SYNDROME
     Dosage: 10 MILLIGRAM
     Route: 048
     Dates: start: 20101014, end: 20101220
  11. O2 [Concomitant]
     Dosage: 1 LITERS
     Route: 065
     Dates: start: 20040323
  12. TOPICORT [Concomitant]
     Dosage: .25 PERCENT
     Route: 061
     Dates: start: 20100113
  13. DIGOXIN [Concomitant]
     Dosage: 1 TABLET
     Route: 048
     Dates: start: 20100301
  14. LASIX [Concomitant]
     Dosage: 1 TABLET
     Route: 048
     Dates: start: 20100922
  15. MAGIC MOUTHWASH [Concomitant]
     Dosage: 5 ML, SWISH OR SWALLOW
     Route: 048
     Dates: start: 20100927
  16. XIBROM [Concomitant]
     Dosage: 1 DROPS
     Route: 047
     Dates: start: 20101029
  17. AMBIEN [Concomitant]
     Dosage: 1 TABLET
     Route: 048
     Dates: start: 20100226
  18. METAGLIP [Concomitant]
     Dosage: 5-500MG, TWO TABS
     Route: 048
     Dates: start: 20100301
  19. VYTORIN [Concomitant]
     Dosage: 10-40MG, 1 TAB
     Route: 048
     Dates: start: 20091109
  20. VALTREX [Concomitant]
     Dosage: 1 TABLET
     Route: 048
     Dates: start: 20100301
  21. MULTI-VITAMINS [Concomitant]
     Dosage: 1 CAPSULE
     Route: 048
     Dates: start: 20020319
  22. KEFLEX [Concomitant]
     Dosage: 1 TABLET
     Route: 048
     Dates: start: 20101124
  23. CALCIUM CARBONATE [Concomitant]
     Dosage: 2 TABLET
     Route: 048
     Dates: start: 20020319
  24. LOTRISONE [Concomitant]
     Dosage: .05 PERCENT
     Route: 061
     Dates: start: 20101026
  25. KLOR-CON [Concomitant]
     Dosage: 1 PACK IN 8 OZ OF WATER
     Route: 048
  26. FERROUS SULFATE TAB [Concomitant]
     Dosage: 1 TABLET
     Route: 048
     Dates: start: 20090605
  27. PROCHLORPERAZINE MALEATE [Concomitant]
     Indication: NAUSEA
     Dosage: 10 MILLIGRAM
     Route: 048
     Dates: start: 20101103
  28. MIRALAX [Concomitant]
     Indication: CONSTIPATION
     Route: 048
     Dates: start: 20101103
  29. BACITRACIN ZINC [Concomitant]
     Route: 061
     Dates: start: 20101130
  30. CIPROFLOXACIN HCL [Concomitant]
     Dosage: 1 TABLET
     Route: 048
     Dates: start: 20101220

REACTIONS (1)
  - DEATH [None]
